FAERS Safety Report 8193235-6 (Version None)
Quarter: 2012Q1

REPORT INFORMATION
  Report Type: 
  Country: None (occurrence: None)
  Receive Date: 20120308
  Receipt Date: 20120229
  Transmission Date: 20120608
  Serious: Yes (Hospitalization, Other)
  Sender: FDA-Public Use
  Company Number: GB-B.I. PHARMACEUTICALS,INC./RIDGEFIELD-2012-UK-00312UK

PATIENT
  Age: 77 Year
  Sex: Male

DRUGS (8)
  1. ERLOTINIB HYDROCHLORIDE [Concomitant]
  2. IRBESARTAN [Concomitant]
  3. ATORVASTATIN [Concomitant]
  4. TAMSULOSIN HCL [Concomitant]
  5. PRADAXA [Suspect]
     Dates: start: 20120104
  6. OMEPRAZOLE [Concomitant]
  7. OXYBUTYNIN [Concomitant]
  8. TEMAZEPAM [Concomitant]

REACTIONS (1)
  - TRANSIENT ISCHAEMIC ATTACK [None]
